FAERS Safety Report 9572670 (Version 1)
Quarter: 2013Q3

REPORT INFORMATION
  Report Type: Spontaneous
  Country: None (occurrence: None)
  Receive Date: 20130927
  Receipt Date: 20130927
  Transmission Date: 20140515
  Serious: Yes (Hospitalization)
  Sender: FDA-Public Use
  Company Number: B0925061A

PATIENT
  Age: 30 Year
  Sex: Male

DRUGS (5)
  1. ABACAVIR SULPHATE [Suspect]
     Indication: HIV INFECTION
     Dates: start: 000812
  2. DIDANOSINE [Suspect]
     Indication: HIV INFECTION
     Dates: start: 000812
  3. LOPINAVIR [Suspect]
     Indication: HIV INFECTION
     Dates: start: 000812
  4. RITONAVIR [Suspect]
     Indication: HIV INFECTION
     Dates: start: 000812
  5. VALPROIC ACID [Concomitant]

REACTIONS (7)
  - Hemiplegia [None]
  - VIIth nerve paralysis [None]
  - Visual impairment [None]
  - Aphasia [None]
  - Brain abscess [None]
  - Immune reconstitution inflammatory syndrome [None]
  - Muscular weakness [None]
